FAERS Safety Report 5707681-0 (Version None)
Quarter: 2008Q2

REPORT INFORMATION
  Report Type: 
  Country: None (occurrence: None)
  Receive Date: 20080416
  Receipt Date: 20080409
  Transmission Date: 20081010
  Serious: Yes (Other)
  Sender: FDA-Public Use
  Company Number: ZA-PFIZER INC-2008032200

PATIENT
  Age: 75 Year
  Sex: Female

DRUGS (1)
  1. CELEBREX [Suspect]
     Route: 048

REACTIONS (4)
  - DELIRIUM [None]
  - PRURITUS [None]
  - RASH [None]
  - SWOLLEN TONGUE [None]
